FAERS Safety Report 21927016 (Version 1)
Quarter: 2023Q1

REPORT INFORMATION
  Report Type: Spontaneous
  Country: DE (occurrence: None)
  Receive Date: 20230128
  Receipt Date: 20230128
  Transmission Date: 20230418
  Serious: Yes (Disabling)
  Sender: FDA-Public Use
  Company Number: None

PATIENT
  Age: 33 Year
  Sex: Female
  Weight: 99 kg

DRUGS (1)
  1. VARENICLINE [Suspect]
     Active Substance: VARENICLINE
     Indication: Ex-tobacco user
     Dosage: OTHER QUANTITY : 1 TABLET(S);?FREQUENCY : TWICE A DAY;?
     Route: 048
     Dates: start: 20230104, end: 20230127

REACTIONS (8)
  - Anxiety [None]
  - Insomnia [None]
  - Tremor [None]
  - Feeling jittery [None]
  - Hypopnoea [None]
  - Malaise [None]
  - Menstruation delayed [None]
  - Asthenia [None]

NARRATIVE: CASE EVENT DATE: 20230126
